FAERS Safety Report 15721180 (Version 1)
Quarter: 2018Q4

REPORT INFORMATION
  Report Type: Spontaneous
  Country: US (occurrence: US)
  Receive Date: 20181214
  Receipt Date: 20181214
  Transmission Date: 20190205
  Serious: Yes (Other)
  Sender: FDA-Public Use
  Company Number: US-CIPLA LTD.-2018US23557

PATIENT

DRUGS (6)
  1. WARFARIN [Suspect]
     Active Substance: WARFARIN
     Indication: THROMBOSIS PROPHYLAXIS
     Dosage: 24 MG, PER WEEK
     Route: 065
  2. WARFARIN [Interacting]
     Active Substance: WARFARIN
     Dosage: 28 MG, PER WEEK
     Route: 065
  3. WARFARIN [Interacting]
     Active Substance: WARFARIN
     Dosage: 56 MG, PER WEEK
     Route: 065
  4. ASPIRIN                            /00002701/ [Concomitant]
     Active Substance: ASPIRIN
     Indication: PRODUCT USED FOR UNKNOWN INDICATION
     Dosage: UNK
     Route: 065
  5. WARFARIN [Interacting]
     Active Substance: WARFARIN
     Dosage: 30 MG, UNK FOR 1 WEEK
     Route: 065
  6. NAFCILLIN [Interacting]
     Active Substance: NAFCILLIN\NAFCILLIN SODIUM
     Indication: POSTOPERATIVE WOUND INFECTION
     Dosage: UNK, 6 WEEKS
     Route: 065

REACTIONS (2)
  - Drug interaction [Unknown]
  - International normalised ratio decreased [Recovered/Resolved]
